FAERS Safety Report 7391913-X (Version None)
Quarter: 2011Q2

REPORT INFORMATION
  Report Type: 
  Country: None (occurrence: None)
  Receive Date: 20110404
  Receipt Date: 20110330
  Transmission Date: 20111010
  Serious: Yes (Death, Hospitalization, Other)
  Sender: FDA-Public Use
  Company Number: FR-GENZYME-CAMP-1001159

PATIENT
  Sex: Male
  Weight: 70 kg

DRUGS (4)
  1. CAMPATH [Suspect]
     Indication: CHRONIC LYMPHOCYTIC LEUKAEMIA
     Dosage: 30 MG, UNK
     Route: 058
     Dates: start: 20101108, end: 20101108
  2. DEXAMETHASONE [Suspect]
     Indication: CHRONIC LYMPHOCYTIC LEUKAEMIA
     Dosage: 40 MG, UNK
     Route: 048
     Dates: start: 20100201, end: 20100209
  3. PEGFILGRASTIM [Concomitant]
     Indication: NEUTROPENIA
     Dosage: UNK
     Route: 065
  4. DEXAMETHASONE [Suspect]
     Dosage: 40 MG, UNK
     Route: 048
     Dates: start: 20100216, end: 20100219

REACTIONS (4)
  - CHRONIC LYMPHOCYTIC LEUKAEMIA TRANSFORMATION [None]
  - PLEURAL EFFUSION [None]
  - PYREXIA [None]
  - CHRONIC LYMPHOCYTIC LEUKAEMIA [None]
